FAERS Safety Report 8378876-5 (Version None)
Quarter: 2012Q2

REPORT INFORMATION
  Report Type: 
  Country: None (occurrence: None)
  Receive Date: 20120522
  Receipt Date: 20120522
  Transmission Date: 20120825
  Serious: No
  Sender: FDA-Public Use
  Company Number: None

PATIENT
  Age: 66 Year
  Sex: Male
  Weight: 111 kg

DRUGS (25)
  1. MAGNESIUM SULFATE [Concomitant]
  2. DOPAMINE HCL [Concomitant]
  3. ASPIRIN [Concomitant]
  4. DOCUSATE [Concomitant]
  5. CALCIUM CHLORIDE [Concomitant]
  6. ALBUMIN (HUMAN) [Concomitant]
  7. POTASSIUM CHLORIDE [Concomitant]
  8. EPINEPHRINE [Concomitant]
  9. SUCRALFATE [Concomitant]
  10. LISINOPRIL [Concomitant]
  11. EPINEPHRINE [Concomitant]
  12. SODIUM CHLORIDE [Concomitant]
  13. HYDROMORPHONE HCL [Concomitant]
  14. MORPHINE [Concomitant]
  15. PROPOFOL [Concomitant]
  16. INSULIN [Concomitant]
  17. ALBUMINAR-25 [Suspect]
     Indication: HYPOTENSION
     Dosage: 25G X 1 IV
     Route: 042
     Dates: start: 20120308, end: 20120309
  18. DOPAMINE HCL [Concomitant]
  19. FUROSEMIDE [Concomitant]
  20. PROPOFOL [Concomitant]
  21. ALBUMINAR [Suspect]
     Dosage: 25% X1 IV
     Route: 042
  22. CEFAZOLIN [Concomitant]
  23. PHENYLEPHRINE HCL [Concomitant]
  24. DOPAMINE HCL [Concomitant]
  25. PHENYLEPHRINE HCL [Concomitant]

REACTIONS (1)
  - BLOOD PRESSURE DECREASED [None]
